FAERS Safety Report 14234962 (Version 2)
Quarter: 2018Q4

REPORT INFORMATION
  Report Type: Spontaneous
  Country: US (occurrence: US)
  Receive Date: 20171129
  Receipt Date: 20181203
  Transmission Date: 20190204
  Serious: No
  Sender: FDA-Public Use
  Company Number: US-LUPIN PHARMACEUTICALS INC.-2017-05036

PATIENT
  Age: 73 Year
  Sex: Male
  Weight: 80.73 kg

DRUGS (1)
  1. GAVILAX [Suspect]
     Active Substance: POLYETHYLENE GLYCOL 3350
     Indication: CONSTIPATION
     Dosage: 1 CAPFUL, QD
     Route: 048
     Dates: start: 20170815, end: 20170816

REACTIONS (4)
  - Faeces hard [Recovered/Resolved]
  - Drug ineffective [None]
  - Product odour abnormal [Unknown]
  - Constipation [Recovered/Resolved]

NARRATIVE: CASE EVENT DATE: 20170816
